FAERS Safety Report 25059400 (Version 1)
Quarter: 2025Q1

REPORT INFORMATION
  Report Type: Spontaneous
  Country: US (occurrence: None)
  Receive Date: 20250310
  Receipt Date: 20250310
  Transmission Date: 20250409
  Serious: Yes (Other)
  Sender: FDA-CTU
  Company Number: None

PATIENT
  Age: 52 Year
  Sex: Female
  Weight: 51.75 kg

DRUGS (5)
  1. LURASIDONE HCL [Suspect]
     Active Substance: LURASIDONE HYDROCHLORIDE
     Indication: Bipolar II disorder
     Dates: start: 20250301, end: 20250303
  2. VEOZAH [Suspect]
     Active Substance: FEZOLINETANT
     Indication: Bipolar II disorder
     Dates: start: 20250301, end: 20250303
  3. LAMOTRIGINE [Concomitant]
     Active Substance: LAMOTRIGINE
  4. ANASTROZOLE [Concomitant]
     Active Substance: ANASTROZOLE
  5. CALCIUM [Concomitant]
     Active Substance: CALCIUM

REACTIONS (3)
  - Hot flush [None]
  - Disease recurrence [None]
  - Drug ineffective [None]

NARRATIVE: CASE EVENT DATE: 20250303
